FAERS Safety Report 15962892 (Version 2)
Quarter: 2020Q1

REPORT INFORMATION
  Report Type: Spontaneous
  Country: US (occurrence: US)
  Receive Date: 20190214
  Receipt Date: 20200313
  Transmission Date: 20200409
  Serious: Yes (Other)
  Sender: FDA-Public Use
  Company Number: US-ASTRAZENECA-2019SE22518

PATIENT
  Age: 21959 Day
  Sex: Female
  Weight: 94.8 kg

DRUGS (14)
  1. NEXIUM 24HR [Suspect]
     Active Substance: ESOMEPRAZOLE MAGNESIUM
     Indication: DYSPEPSIA
     Dosage: LATE 1980^S
     Route: 048
     Dates: end: 20150322
  2. PREVACID 24 HR [Suspect]
     Active Substance: LANSOPRAZOLE
     Dosage: LATE 1980^S
     Route: 065
     Dates: end: 20150322
  3. ZANTAC [Concomitant]
     Active Substance: RANITIDINE HYDROCHLORIDE
     Dates: start: 2014
  4. NEXIUM [Suspect]
     Active Substance: ESOMEPRAZOLE MAGNESIUM
     Indication: DYSPEPSIA
     Dosage: 40.0MG UNKNOWN
     Route: 048
     Dates: start: 20021210, end: 20141029
  5. PREVACID [Suspect]
     Active Substance: LANSOPRAZOLE
     Dosage: LATE 1980^S
     Route: 065
     Dates: end: 20150322
  6. ZEGERID OTC [Suspect]
     Active Substance: OMEPRAZOLE\SODIUM BICARBONATE
     Dosage: LATE 1980^S
     Route: 065
     Dates: end: 20150322
  7. PRILOSEC [Suspect]
     Active Substance: OMEPRAZOLE MAGNESIUM
     Dosage: LATE 1980^S
     Route: 048
     Dates: end: 20150322
  8. PEPCID [Concomitant]
     Active Substance: FAMOTIDINE
     Dates: start: 2014
  9. TAGAMET [Concomitant]
     Active Substance: CIMETIDINE
     Dates: start: 2014
  10. ZEGERID [Suspect]
     Active Substance: OMEPRAZOLE\SODIUM BICARBONATE
     Dosage: LATE 1980^S
     Route: 065
     Dates: end: 20150322
  11. NEXIUM [Suspect]
     Active Substance: ESOMEPRAZOLE MAGNESIUM
     Indication: DYSPEPSIA
     Dosage: LATE 1980^S40.0MG UNKNOWN
     Route: 048
     Dates: end: 20150322
  12. PRILOSEC OTC [Suspect]
     Active Substance: OMEPRAZOLE MAGNESIUM
     Dosage: LATE 1980^S
     Route: 048
     Dates: end: 20150322
  13. PEPTO-BISMOL [Concomitant]
     Active Substance: BISMUTH SUBSALICYLATE
     Dosage: TWO TIMES A DAY
     Dates: start: 201809
  14. TUMS [Concomitant]
     Active Substance: CALCIUM CARBONATE
     Dosage: THREE TIMES A DAY
     Dates: start: 201709

REACTIONS (2)
  - Renal failure [Not Recovered/Not Resolved]
  - Chronic kidney disease [Unknown]

NARRATIVE: CASE EVENT DATE: 20150322
